FAERS Safety Report 10062648 (Version 1)
Quarter: 2014Q2

REPORT INFORMATION
  Report Type: Spontaneous
  Country: AU (occurrence: AU)
  Receive Date: 20140407
  Receipt Date: 20140407
  Transmission Date: 20141212
  Serious: Yes (Other)
  Sender: FDA-Public Use
  Company Number: AU-PERRIGO-14AU003313

PATIENT
  Sex: Female

DRUGS (6)
  1. ACETAMINOPHEN 650MG ER 544 [Suspect]
     Indication: ANALGESIC THERAPY
     Dosage: 1 GRAM, AT 6, 12 AND 18 HOURS
  2. ACETAMINOPHEN [Suspect]
     Indication: ANALGESIC THERAPY
     Dosage: 2 G, SINGLE
     Route: 042
  3. PLACEBO [Concomitant]
     Indication: ANALGESIC THERAPY
     Route: 065
  4. BUPIVACAINE [Concomitant]
     Indication: ANAESTHESIA
     Dosage: 2.1-2.5 ML
     Route: 008
  5. FENTANYL [Concomitant]
     Indication: ANAESTHESIA
     Dosage: 15 MCG
     Route: 008
  6. PETHIDINE [Concomitant]
     Indication: ANALGESIC THERAPY
     Route: 008

REACTIONS (1)
  - Urinary retention [Unknown]
